FAERS Safety Report 15168324 (Version 1)
Quarter: 2018Q3

REPORT INFORMATION
  Report Type: Spontaneous
  Country: FR (occurrence: FR)
  Receive Date: 20180719
  Receipt Date: 20180719
  Transmission Date: 20181010
  Serious: Yes (Hospitalization)
  Sender: FDA-Public Use
  Company Number: FR-SA-2018SA194950

PATIENT
  Age: 75 Year
  Sex: Male
  Weight: 96 kg

DRUGS (8)
  1. HYDROCHLOROTHIAZIDE. [Concomitant]
     Active Substance: HYDROCHLOROTHIAZIDE
  2. XYZALL [Suspect]
     Active Substance: LEVOCETIRIZINE DIHYDROCHLORIDE
     Indication: RASH
     Dosage: UNK UNK, UNK
     Route: 048
     Dates: start: 201804, end: 201804
  3. ADENURIC [Concomitant]
     Active Substance: FEBUXOSTAT
  4. FUCIDINE H [Concomitant]
  5. SILODYX [Concomitant]
     Active Substance: SILODOSIN
     Dosage: UNK
  6. VALSARTAN. [Concomitant]
     Active Substance: VALSARTAN
     Dosage: UNK
  7. KESTIN [Concomitant]
     Active Substance: EBASTINE
  8. BILASTINE [Suspect]
     Active Substance: BILASTINE
     Indication: RASH
     Dosage: UNK UNK, UNK
     Route: 048
     Dates: start: 20180427, end: 20180505

REACTIONS (1)
  - Vascular purpura [Recovering/Resolving]

NARRATIVE: CASE EVENT DATE: 20180505
